FAERS Safety Report 8863797 (Version 1)
Quarter: 2012Q4

REPORT INFORMATION
  Report Type: 
  Country: US (occurrence: US)
  Receive Date: 20121024
  Receipt Date: 20121024
  Transmission Date: 20130627
  Serious: No
  Sender: FDA-Public Use
  Company Number: US-AMGEN-USASP2011064210

PATIENT
  Age: 68 Year
  Sex: Female

DRUGS (13)
  1. ENBREL [Suspect]
     Indication: PRODUCT USED FOR UNKNOWN INDICATION
     Dosage: 50 mg, UNK
  2. METHOTREXATE [Concomitant]
     Dosage: 2.5 mg, UNK
  3. FOLIC ACID [Concomitant]
  4. FOSAMAX [Concomitant]
  5. COREG [Concomitant]
  6. LISINOPRIL [Concomitant]
  7. PREDNISONE [Concomitant]
  8. ECOTRIN [Concomitant]
  9. TYLENOL /00020001/ [Concomitant]
  10. IRON [Concomitant]
  11. OSCAL                              /00514701/ [Concomitant]
  12. PRAVASTATIN [Concomitant]
  13. ECONAZOLE [Concomitant]

REACTIONS (1)
  - Tinea pedis [Unknown]
